FAERS Safety Report 4407985-8 (Version None)
Quarter: 2004Q3

REPORT INFORMATION
  Report Type: 
  Country: None (occurrence: None)
  Receive Date: 20040722
  Receipt Date: 20040707
  Transmission Date: 20050211
  Serious: Yes (Other)
  Sender: FDA-Public Use
  Company Number: 2004-DE-03548DE(1)

PATIENT
  Age: 73 Year
  Sex: Female

DRUGS (3)
  1. VIRAMUNE [Suspect]
     Indication: HIV INFECTION
     Dosage: 1-0-1 (200 MG, 1 IN 1 D), PO
     Route: 048
     Dates: start: 20021001
  2. ZERIT [Concomitant]
  3. VIREAD (TENOFOVIR DISOPROXIL FUMARATE) (NR) [Concomitant]

REACTIONS (2)
  - BOWEN'S DISEASE [None]
  - EYELID DISORDER [None]
